FAERS Safety Report 20708762 (Version 4)
Quarter: 2022Q3

REPORT INFORMATION
  Report Type: Report from Study
  Country: US (occurrence: US)
  Receive Date: 20220414
  Receipt Date: 20220809
  Transmission Date: 20221027
  Serious: Yes (Other)
  Sender: FDA-Public Use
  Company Number: US-UCBSA-2022020736

PATIENT
  Age: 32 Year
  Sex: Female

DRUGS (2)
  1. CERTOLIZUMAB PEGOL [Suspect]
     Active Substance: CERTOLIZUMAB PEGOL
     Indication: Psoriasis
     Dosage: 400 MILLIGRAM, EV 2 WEEKS(QOW)
     Dates: start: 20220127, end: 2022
  2. CERTOLIZUMAB PEGOL [Suspect]
     Active Substance: CERTOLIZUMAB PEGOL
     Dosage: 200 MILLIGRAM, EV 2 WEEKS(QOW)
     Dates: start: 2022

REACTIONS (9)
  - Cellulitis [Recovering/Resolving]
  - Eye infection [Recovering/Resolving]
  - Arthralgia [Recovering/Resolving]
  - Nasopharyngitis [Recovering/Resolving]
  - Fatigue [Recovered/Resolved]
  - Pain [Recovering/Resolving]
  - Psoriasis [Recovered/Resolved]
  - COVID-19 [Recovered/Resolved]
  - Injection site pain [Not Recovered/Not Resolved]

NARRATIVE: CASE EVENT DATE: 20220331
